FAERS Safety Report 7764116-4 (Version None)
Quarter: 2011Q3

REPORT INFORMATION
  Report Type: 
  Country: None (occurrence: None)
  Receive Date: 20110921
  Receipt Date: 20110909
  Transmission Date: 20111222
  Serious: Yes (Other)
  Sender: FDA-Public Use
  Company Number: US-ELI_LILLY_AND_COMPANY-US201002003675

PATIENT
  Sex: Female

DRUGS (3)
  1. FORTEO [Suspect]
     Dosage: 20 UG, QD
     Dates: end: 20110301
  2. FORTEO [Suspect]
     Indication: OSTEOPOROSIS
     Dosage: 20 UG, DAILY (1/D)
     Dates: start: 20090301
  3. VITAMIN TAB [Concomitant]

REACTIONS (15)
  - HEAD DISCOMFORT [None]
  - MASTICATION DISORDER [None]
  - COLON CANCER [None]
  - MUSCLE SPASMS [None]
  - ABDOMINAL DISTENSION [None]
  - OSTEOARTHRITIS [None]
  - TEMPOROMANDIBULAR JOINT SYNDROME [None]
  - CHEST PAIN [None]
  - WEIGHT INCREASED [None]
  - PAIN [None]
  - MALIGNANT MESENTERIC NEOPLASM [None]
  - ABDOMINAL PAIN UPPER [None]
  - FEELING ABNORMAL [None]
  - HYPOAESTHESIA [None]
  - BENIGN OVARIAN TUMOUR [None]
